FAERS Safety Report 11746749 (Version 2)
Quarter: 2015Q4

REPORT INFORMATION
  Report Type: Spontaneous
  Country: FR (occurrence: FR)
  Receive Date: 20151117
  Receipt Date: 20151119
  Transmission Date: 20160304
  Serious: Yes (Hospitalization)
  Sender: FDA-Public Use
  Company Number: FR-SA-2015SA177697

PATIENT
  Age: 80 Year
  Sex: Female

DRUGS (9)
  1. PREVISCAN [Concomitant]
     Active Substance: FLUINDIONE
     Dosage: STRENGTH: 20 MG
     Route: 048
  2. SERESTA [Concomitant]
     Active Substance: OXAZEPAM
     Route: 048
  3. DIGOXINE [Concomitant]
     Active Substance: DIGOXIN
     Dosage: DOSE: MON, WED THU, FRI AND SUNDAY (250 MCG)
     Route: 048
  4. BISOPROLOL [Concomitant]
     Active Substance: BISOPROLOL
     Route: 048
  5. LANSOPRAZOLE. [Concomitant]
     Active Substance: LANSOPRAZOLE
     Route: 048
  6. ESIDREX [Suspect]
     Active Substance: HYDROCHLOROTHIAZIDE
     Route: 048
  7. ALLOPURINOL. [Concomitant]
     Active Substance: ALLOPURINOL
     Route: 048
  8. ALDACTONE [Suspect]
     Active Substance: SPIRONOLACTONE
     Route: 048
  9. LASILIX SPECIAL [Suspect]
     Active Substance: FUROSEMIDE
     Route: 048

REACTIONS (2)
  - Dehydration [Unknown]
  - Cardioactive drug level increased [Unknown]

NARRATIVE: CASE EVENT DATE: 20150720
